FAERS Safety Report 13546999 (Version 2)
Quarter: 2017Q2

REPORT INFORMATION
  Report Type: Report from Study
  Country: US (occurrence: US)
  Receive Date: 20170515
  Receipt Date: 20170526
  Transmission Date: 20170830
  Serious: Yes (Other)
  Sender: FDA-Public Use
  Company Number: US-JAZZ-2017-US-005895

PATIENT
  Sex: Female

DRUGS (40)
  1. DOXYCYCLINE HYCLATE. [Concomitant]
     Active Substance: DOXYCYCLINE HYCLATE
  2. FOCALIN [Concomitant]
     Active Substance: DEXMETHYLPHENIDATE HYDROCHLORIDE
  3. PARLODEL [Concomitant]
     Active Substance: BROMOCRIPTINE MESYLATE
  4. ADDERALL [Concomitant]
     Active Substance: AMPHETAMINE ASPARTATE\AMPHETAMINE SULFATE\DEXTROAMPHETAMINE SACCHARATE\DEXTROAMPHETAMINE SULFATE
  5. ROBAXIN [Suspect]
     Active Substance: METHOCARBAMOL
     Indication: PRODUCT USED FOR UNKNOWN INDICATION
  6. ACETAMINOPHEN. [Concomitant]
     Active Substance: ACETAMINOPHEN
  7. OXYMETAZOLINE [Concomitant]
     Active Substance: OXYMETAZOLINE
  8. METHOCARBAMOL. [Concomitant]
     Active Substance: METHOCARBAMOL
  9. PSEUDOEPHEDRINE HYDROCHLORIDE. [Concomitant]
     Active Substance: PSEUDOEPHEDRINE HYDROCHLORIDE
  10. CABERGOLINE. [Concomitant]
     Active Substance: CABERGOLINE
  11. DIAZEPAM. [Concomitant]
     Active Substance: DIAZEPAM
  12. NASONEX [Concomitant]
     Active Substance: MOMETASONE FUROATE
  13. GABAPENTIN. [Concomitant]
     Active Substance: GABAPENTIN
  14. LEXAPRO [Concomitant]
     Active Substance: ESCITALOPRAM OXALATE
  15. CLARITIN [Concomitant]
     Active Substance: LORATADINE
  16. XYREM [Suspect]
     Active Substance: SODIUM OXYBATE
     Indication: CATAPLEXY
     Dosage: DOSE ADJUSTMENT
     Route: 048
     Dates: start: 201101, end: 201611
  17. XYREM [Suspect]
     Active Substance: SODIUM OXYBATE
     Dosage: 2.25 G, BID
     Route: 048
     Dates: start: 201611
  18. HYDROCODONE BITARTRATE AND ACETAMINOPHEN [Concomitant]
     Active Substance: ACETAMINOPHEN\HYDROCODONE BITARTRATE
  19. MUCINEX DM [Concomitant]
     Active Substance: DEXTROMETHORPHAN HYDROBROMIDE\GUAIFENESIN
  20. PROAIR HFA [Concomitant]
     Active Substance: ALBUTEROL SULFATE
  21. TRANSDERM SCOP [Concomitant]
     Active Substance: SCOPOLAMINE
  22. SYNTHROID [Concomitant]
     Active Substance: LEVOTHYROXINE SODIUM
  23. XYREM [Suspect]
     Active Substance: SODIUM OXYBATE
     Indication: NARCOLEPSY
     Dosage: 2.25 G, BID
     Route: 048
     Dates: start: 201101, end: 2011
  24. MONONESSA [Concomitant]
     Active Substance: ETHINYL ESTRADIOL\NORGESTIMATE
  25. ALFUZOSIN HCL [Concomitant]
     Active Substance: ALFUZOSIN HYDROCHLORIDE
  26. PROVIGIL [Concomitant]
     Active Substance: MODAFINIL
  27. MIRENA [Concomitant]
     Active Substance: LEVONORGESTREL
  28. DETROL LA [Concomitant]
     Active Substance: TOLTERODINE TARTRATE
  29. ONDANSETROM                        /00955301/ [Concomitant]
     Active Substance: ONDANSETRON
  30. ALPRAZOLAM. [Concomitant]
     Active Substance: ALPRAZOLAM
  31. DEXILANT [Concomitant]
     Active Substance: DEXLANSOPRAZOLE
  32. FLUCONAZOLE. [Concomitant]
     Active Substance: FLUCONAZOLE
  33. LEVAQUIN [Concomitant]
     Active Substance: LEVOFLOXACIN
  34. EFFEXOR [Concomitant]
     Active Substance: VENLAFAXINE HYDROCHLORIDE
  35. FLONASE                            /00908302/ [Concomitant]
     Active Substance: MOMETASONE FUROATE
  36. GRALISE [Concomitant]
     Active Substance: GABAPENTIN
  37. CELEBREX [Concomitant]
     Active Substance: CELECOXIB
  38. IBUPROFEN                          /00109205/ [Concomitant]
     Active Substance: IBUPROFEN
  39. ACETAZOLAMIDE. [Concomitant]
     Active Substance: ACETAZOLAMIDE
  40. VICODIN [Concomitant]
     Active Substance: ACETAMINOPHEN\HYDROCODONE BITARTRATE

REACTIONS (5)
  - Cluster headache [Not Recovered/Not Resolved]
  - Bronchitis [Recovered/Resolved]
  - Migraine [Not Recovered/Not Resolved]
  - Somnolence [Unknown]
  - Wheezing [Unknown]
